FAERS Safety Report 5236276-0 (Version None)
Quarter: 2007Q1

REPORT INFORMATION
  Report Type: 
  Country: None (occurrence: None)
  Receive Date: 20070212
  Receipt Date: 20070131
  Transmission Date: 20070707
  Serious: Yes (Other)
  Sender: FDA-Public Use
  Company Number: CN-PFIZER INC-2007006608

PATIENT
  Age: 48 Year
  Sex: Male

DRUGS (1)
  1. NORVASC [Suspect]
     Indication: HYPERTENSION
     Route: 048
     Dates: start: 20061101, end: 20070101

REACTIONS (6)
  - DIZZINESS [None]
  - DRY MOUTH [None]
  - HEADACHE [None]
  - MYALGIA [None]
  - PLATELET AGGREGATION INCREASED [None]
  - PLATELET COUNT DECREASED [None]
